FAERS Safety Report 24769575 (Version 1)
Quarter: 2024Q4

REPORT INFORMATION
  Report Type: Spontaneous
  Country: US (occurrence: US)
  Receive Date: 20241224
  Receipt Date: 20241224
  Transmission Date: 20250115
  Serious: No
  Sender: KYOWA
  Company Number: US-KYOWAKIRIN-2024KK028448

PATIENT

DRUGS (1)
  1. CRYSVITA [Suspect]
     Active Substance: BUROSUMAB-TWZA
     Indication: Hereditary hypophosphataemic rickets
     Dosage: 0.4 MG/KG (2 DOSES)
     Route: 065

REACTIONS (3)
  - Pain in extremity [Recovered/Resolved]
  - Limb discomfort [Unknown]
  - Off label use [Recovered/Resolved]
